FAERS Safety Report 8179972-8 (Version None)
Quarter: 2012Q1

REPORT INFORMATION
  Report Type: 
  Country: None (occurrence: None)
  Receive Date: 20120302
  Receipt Date: 20120220
  Transmission Date: 20120608
  Serious: Yes (Hospitalization)
  Sender: FDA-Public Use
  Company Number: BR-BRISTOL-MYERS SQUIBB COMPANY-16414369

PATIENT
  Age: 36 Year
  Sex: Female
  Weight: 55 kg

DRUGS (1)
  1. ONGLYZA [Suspect]
     Indication: DIABETES MELLITUS
     Dosage: 1 TAB,RECEIVED 10 TABS
     Route: 048
     Dates: start: 20120101, end: 20120101

REACTIONS (4)
  - FATIGUE [None]
  - DIABETES MELLITUS [None]
  - VOMITING [None]
  - GENERALISED OEDEMA [None]
